FAERS Safety Report 13656315 (Version 1)
Quarter: 2017Q2

REPORT INFORMATION
  Report Type: Spontaneous
  Country: US (occurrence: US)
  Receive Date: 20170615
  Receipt Date: 20170615
  Transmission Date: 20170830
  Serious: No
  Sender: FDA-Public Use
  Company Number: None

PATIENT

DRUGS (2)
  1. CIPROFLOXACIN. [Suspect]
     Active Substance: CIPROFLOXACIN
  2. LEVOFLOXACIN. [Suspect]
     Active Substance: LEVOFLOXACIN

REACTIONS (10)
  - Asthenia [None]
  - Neuropathy peripheral [None]
  - Memory impairment [None]
  - Erectile dysfunction [None]
  - Pain [None]
  - Drug ineffective [None]
  - Pain in extremity [None]
  - Pruritus [None]
  - Hypoacusis [None]
  - Visual acuity reduced [None]
